FAERS Safety Report 25937013 (Version 1)
Quarter: 2025Q4

REPORT INFORMATION
  Report Type: Spontaneous
  Country: EU (occurrence: EU)
  Receive Date: 20251017
  Receipt Date: 20251017
  Transmission Date: 20260118
  Serious: Yes (Death, Other)
  Sender: REGENERON
  Company Number: EU-REGENERON PHARMACEUTICALS, INC.-2025-164877

PATIENT
  Age: 71 Year
  Sex: Male

DRUGS (1)
  1. LIBTAYO [Suspect]
     Active Substance: CEMIPLIMAB-RWLC
     Indication: Non-small cell lung cancer metastatic
     Dosage: PATIENT RECIEVED 6 CYCLES

REACTIONS (1)
  - Death [Fatal]
